FAERS Safety Report 4340405-0 (Version None)
Quarter: 2004Q2

REPORT INFORMATION
  Report Type: 
  Country: None (occurrence: None)
  Receive Date: 20040414
  Receipt Date: 20040322
  Transmission Date: 20050107
  Serious: Yes (Hospitalization, Other)
  Sender: FDA-Public Use
  Company Number: FR-JNJFOC-20040205524

PATIENT
  Age: 88 Year
  Sex: Female
  Weight: 53 kg

DRUGS (5)
  1. RISPERDAL [Suspect]
     Dosage: 1 MG, 1 IN 1 DAY, ORAL
     Route: 048
     Dates: end: 20040202
  2. TRAMADOL HCL [Suspect]
     Dosage: 2 DOSE(S), IN 1 DAY, ORAL
     Route: 048
     Dates: start: 20040122, end: 20040202
  3. ARICEPT [Suspect]
     Indication: DEMENTIA
     Dosage: 10 MG, IN 1 DAY, ORAL
     Route: 048
     Dates: end: 20040202
  4. RAMIPRIL [Concomitant]
  5. LEVOTHYROXINE SODIUM [Concomitant]

REACTIONS (5)
  - AGGRESSION [None]
  - DEPRESSED LEVEL OF CONSCIOUSNESS [None]
  - ELECTROENCEPHALOGRAM ABNORMAL [None]
  - EPILEPSY [None]
  - INTESTINAL OBSTRUCTION [None]
